FAERS Safety Report 5816932-3 (Version None)
Quarter: 2008Q3

REPORT INFORMATION
  Report Type: 
  Country: None (occurrence: None)
  Receive Date: 20080722
  Receipt Date: 20080710
  Transmission Date: 20090109
  Serious: Yes (Hospitalization, Other)
  Sender: FDA-Public Use
  Company Number: PHNU2008DE01364

PATIENT
  Sex: Male
  Weight: 83 kg

DRUGS (5)
  1. ZOMETA [Suspect]
     Indication: PROSTATE CANCER
     Dosage: 4 MG, QMO
     Route: 042
     Dates: start: 20030624
  2. ZOMETA [Suspect]
     Indication: METASTASES TO BONE
  3. FLUTAMID ^WOERWAG^ [Concomitant]
     Indication: METASTASES TO BONE
     Dosage: UNK
     Dates: start: 20050328, end: 20080415
  4. CASODEX [Concomitant]
     Indication: METASTASES TO BONE
     Dosage: 150 MG
     Dates: start: 20030416
  5. TRENANTONE [Concomitant]
     Indication: PROSTATE CANCER
     Dosage: UNK
     Dates: start: 20030328

REACTIONS (6)
  - IMPAIRED HEALING [None]
  - INFLAMMATION [None]
  - ORAL SURGERY [None]
  - OSTEONECROSIS [None]
  - PLASTIC SURGERY [None]
  - TOOTH EXTRACTION [None]
